FAERS Safety Report 7771810-8 (Version None)
Quarter: 2011Q3

REPORT INFORMATION
  Report Type: 
  Country: None (occurrence: None)
  Receive Date: 20110922
  Receipt Date: 20110915
  Transmission Date: 20111222
  Serious: Yes (Other)
  Sender: FDA-Public Use
  Company Number: FR-JNJFOC-20110907858

PATIENT

DRUGS (5)
  1. HYDROCORTISONE [Concomitant]
     Indication: ADRENAL INSUFFICIENCY
     Route: 048
  2. NIZORAL [Suspect]
     Indication: CUSHING'S SYNDROME
     Dosage: 4 TABLETS
     Route: 048
  3. ANTI-COAGULANT THERAPY [Concomitant]
     Indication: ANTICOAGULANT THERAPY
     Route: 065
  4. METOPIRONE [Suspect]
     Indication: CUSHING'S SYNDROME
     Dosage: NINE CAPSULES
     Route: 048
  5. LYSODREN [Suspect]
     Indication: CUSHING'S SYNDROME
     Route: 048

REACTIONS (1)
  - HYPERCHOLESTEROLAEMIA [None]
